FAERS Safety Report 25332581 (Version 4)
Quarter: 2025Q3

REPORT INFORMATION
  Report Type: Spontaneous
  Country: US (occurrence: US)
  Receive Date: 20250519
  Receipt Date: 20250731
  Transmission Date: 20251020
  Serious: No
  Sender: Unknown Manufacturer
  Company Number: US-THERATECHNOLOGIES INC.-2025-THE-TES-000134

PATIENT

DRUGS (1)
  1. EGRIFTA SV [Suspect]
     Active Substance: TESAMORELIN ACETATE
     Indication: Lipodystrophy acquired
     Dosage: 1.4 MG, QD ((0.35ML) REQUIRES 1 VIAL OF EGRIFTA SV 2MG)
     Route: 058
     Dates: start: 20250509, end: 20250516

REACTIONS (9)
  - Incorrect dose administered [Unknown]
  - Adverse drug reaction [Unknown]
  - Productive cough [Recovering/Resolving]
  - Chills [Recovered/Resolved]
  - Muscular weakness [Recovering/Resolving]
  - Influenza like illness [Recovering/Resolving]
  - Nasal congestion [Recovering/Resolving]
  - Cough [Recovering/Resolving]
  - Myalgia [Recovering/Resolving]

NARRATIVE: CASE EVENT DATE: 20250501
